FAERS Safety Report 7994338 (Version 10)
Quarter: 2014Q1

REPORT INFORMATION
  Report Type: Spontaneous
  Country: US (occurrence: US)
  Receive Date: 20110616
  Receipt Date: 20140127
  Transmission Date: 20141002
  Serious: Yes (Hospitalization, Disabling, Other)
  Sender: FDA-Public Use
  Company Number: US-009507513-1106USA01826

PATIENT
  Sex: Female
  Weight: 93.44 kg

DRUGS (7)
  1. RECLAST [Concomitant]
     Indication: OSTEOPOROSIS
     Route: 041
     Dates: start: 20080422, end: 20090427
  2. RECLAST [Concomitant]
     Indication: OSTEOPOROSIS PROPHYLAXIS
  3. FOSAMAX [Suspect]
     Indication: OSTEOPOROSIS
     Dosage: 70 MG, QW
     Route: 048
     Dates: start: 1998, end: 20070823
  4. FOSAMAX [Suspect]
     Indication: OSTEOPOROSIS PROPHYLAXIS
     Dosage: 10 MG, QD
     Route: 048
     Dates: start: 199804, end: 20050301
  5. FOSAMAX [Suspect]
     Dosage: 70 MG, QW
     Route: 048
     Dates: start: 20050302, end: 20070606
  6. BONIVA [Concomitant]
     Indication: OSTEOPOROSIS
     Dosage: UNK UNK, QD
     Route: 048
     Dates: start: 20070606, end: 200804
  7. BONIVA [Concomitant]
     Indication: OSTEOPOROSIS PROPHYLAXIS

REACTIONS (50)
  - Femur fracture [Recovered/Resolved]
  - Gastrointestinal stromal tumour [Unknown]
  - Fall [Unknown]
  - Femur fracture [Unknown]
  - Femur fracture [Recovered/Resolved]
  - Hip fracture [Recovered/Resolved]
  - Fracture delayed union [Unknown]
  - Foot fracture [Unknown]
  - Weight increased [Unknown]
  - Tendon disorder [Unknown]
  - Myofascial pain syndrome [Unknown]
  - Migraine [Recovering/Resolving]
  - Hypertension [Unknown]
  - Blood cholesterol increased [Unknown]
  - Hiatus hernia [Unknown]
  - Cataract [Unknown]
  - Carpal tunnel syndrome [Unknown]
  - Impaired healing [Unknown]
  - Device failure [Unknown]
  - Fall [Unknown]
  - Spinal osteoarthritis [Unknown]
  - Obesity [Unknown]
  - Sciatica [Unknown]
  - Spinal claudication [Unknown]
  - Mass [Unknown]
  - Bursitis [Unknown]
  - Lipoma [Unknown]
  - Intervertebral disc degeneration [Unknown]
  - Spondylolisthesis [Unknown]
  - Intervertebral disc protrusion [Unknown]
  - Lumbar spinal stenosis [Unknown]
  - Sinusitis [Unknown]
  - Allergy to animal [Unknown]
  - Depression [Unknown]
  - Tardive dyskinesia [Not Recovered/Not Resolved]
  - Anaemia [Unknown]
  - Faecal incontinence [Unknown]
  - Tuberculosis [Unknown]
  - Visual impairment [Unknown]
  - Arthritis [Unknown]
  - House dust allergy [Unknown]
  - Arthralgia [Unknown]
  - Back pain [Unknown]
  - Pain in extremity [Unknown]
  - Pain in extremity [Unknown]
  - Pain in extremity [Unknown]
  - Musculoskeletal pain [Unknown]
  - Musculoskeletal pain [Unknown]
  - Constipation [Unknown]
  - Gastrooesophageal reflux disease [Not Recovered/Not Resolved]
